FAERS Safety Report 6042566-4 (Version None)
Quarter: 2009Q1

REPORT INFORMATION
  Report Type: 
  Country: None (occurrence: None)
  Receive Date: 20090119
  Receipt Date: 20090114
  Transmission Date: 20090719
  Serious: Yes (Death, Hospitalization)
  Sender: FDA-Public Use
  Company Number: US-JNJFOC-20090102812

PATIENT
  Age: 59 Year
  Sex: Female
  Weight: 101 kg

DRUGS (13)
  1. INTELENCE [Suspect]
     Indication: HIV INFECTION
     Route: 048
  2. RALTEGRAVIR [Concomitant]
     Indication: HIV INFECTION
  3. EPZICOM [Concomitant]
     Indication: HIV INFECTION
  4. NORVASC [Concomitant]
  5. BENAZEPRIL HYDROCHLORIDE [Concomitant]
  6. TOPROL-XL [Concomitant]
  7. CALCIUM CARBONATE [Concomitant]
  8. NICOTINE [Concomitant]
     Route: 062
  9. SPIRIVA [Concomitant]
  10. HYDROCHLOROTHIAZIDE [Concomitant]
  11. ASPIRIN [Concomitant]
  12. CLEOCIN [Concomitant]
  13. BENAZEPRIL HYDROCHLORIDE [Concomitant]

REACTIONS (8)
  - DRUG RASH WITH EOSINOPHILIA AND SYSTEMIC SYMPTOMS [None]
  - FACE OEDEMA [None]
  - OROPHARYNGEAL SWELLING [None]
  - PNEUMONIA ESCHERICHIA [None]
  - RENAL FAILURE ACUTE [None]
  - RESPIRATORY FAILURE [None]
  - SEPSIS [None]
  - STEVENS-JOHNSON SYNDROME [None]
